FAERS Safety Report 4819111-1 (Version None)
Quarter: 2005Q4

REPORT INFORMATION
  Report Type: 
  Country: None (occurrence: None)
  Receive Date: 20051031
  Receipt Date: 20050815
  Transmission Date: 20060501
  Serious: No
  Sender: FDA-Public Use
  Company Number: 2005PV001077

PATIENT
  Age: 20 Year
  Sex: Female

DRUGS (4)
  1. SYMLIN [Suspect]
     Indication: OBESITY
     Dosage: 120 MCG, BID; SC
     Route: 058
     Dates: end: 20050726
  2. LOPID [Concomitant]
  3. SPIRONOLACTONE [Concomitant]
  4. CHINESE HERB [Concomitant]

REACTIONS (1)
  - URTICARIA [None]
